FAERS Safety Report 6288031-0 (Version None)
Quarter: 2009Q3

REPORT INFORMATION
  Report Type: 
  Country: None (occurrence: None)
  Receive Date: 20090729
  Receipt Date: 20090723
  Transmission Date: 20100115
  Serious: Yes (Death, Hospitalization)
  Sender: FDA-Public Use
  Company Number: NL-ROCHE-645592

PATIENT
  Sex: Female

DRUGS (10)
  1. CAPECITABINE [Suspect]
     Route: 048
     Dates: start: 20081212
  2. CAPECITABINE [Suspect]
     Route: 048
  3. BEVACIZUMAB [Suspect]
     Dosage: TREATMENT ARM B
     Route: 042
     Dates: start: 20081212
  4. BEVACIZUMAB [Suspect]
     Route: 042
  5. PACLITAXEL [Suspect]
     Route: 042
     Dates: start: 20081212
  6. COTRIM [Concomitant]
     Dates: start: 20030101
  7. PREDNISONE [Concomitant]
     Dates: start: 20030101
  8. TOLBUTAMIDE [Concomitant]
     Dosage: DAILY DOSE: 500
     Dates: start: 20030101
  9. AMLODIPINE [Concomitant]
     Dates: start: 20090218
  10. DURAGESIC-100 [Concomitant]
     Dosage: DAILY DOSE: 200
     Dates: start: 20090601

REACTIONS (3)
  - COMA [None]
  - DEATH [None]
  - GENERAL PHYSICAL HEALTH DETERIORATION [None]
